FAERS Safety Report 22122811 (Version 1)
Quarter: 2023Q1

REPORT INFORMATION
  Report Type: Spontaneous
  Country: ES (occurrence: ES)
  Receive Date: 20230322
  Receipt Date: 20230322
  Transmission Date: 20230418
  Serious: Yes (Hospitalization)
  Sender: FDA-Public Use
  Company Number: None

PATIENT
  Age: 76 Year
  Sex: Male

DRUGS (3)
  1. PRAMIPEXOLE [Suspect]
     Active Substance: PRAMIPEXOLE
     Indication: Parkinsonism
     Route: 048
     Dates: start: 20190618, end: 20190812
  2. OMNIC OCAS 0,4 mg COMPRIMIDOS DE LIBERACION PROLONGADA RECUBIERTOS CON [Concomitant]
     Indication: Benign prostatic hyperplasia
     Route: 048
     Dates: start: 20100831
  3. CO-DIOVAN 160 mg/12,5 mg COMPRIMIDOS RECUBIERTOS CON PELICULA, 28 comp [Concomitant]
     Indication: Essential hypertension
     Route: 048
     Dates: start: 20090124

REACTIONS (1)
  - Hallucination, visual [Recovered/Resolved]

NARRATIVE: CASE EVENT DATE: 20190812
